FAERS Safety Report 22781106 (Version 13)
Quarter: 2025Q1

REPORT INFORMATION
  Report Type: Report from Study
  Country: CA (occurrence: CA)
  Receive Date: 20230803
  Receipt Date: 20250313
  Transmission Date: 20250408
  Serious: Yes (Other)
  Sender: BIOCON
  Company Number: CA-MYLANLABS-2023M1079147

PATIENT

DRUGS (4)
  1. HULIO [Suspect]
     Active Substance: ADALIMUMAB-FKJP
     Indication: Psoriasis
     Dosage: 40 MILLIGRAM, Q2W
     Route: 058
     Dates: start: 20230707
  2. HULIO [Suspect]
     Active Substance: ADALIMUMAB-FKJP
     Dosage: 40 MILLIGRAM, Q2W
     Route: 058
     Dates: start: 20230707
  3. HULIO [Suspect]
     Active Substance: ADALIMUMAB-FKJP
  4. METHOTREXATE [Concomitant]
     Active Substance: METHOTREXATE
     Indication: Psoriasis
     Route: 048

REACTIONS (10)
  - Dementia [Unknown]
  - Pneumonia [Recovered/Resolved]
  - Speech disorder [Unknown]
  - Illness [Unknown]
  - Haemoptysis [Unknown]
  - Malaise [Unknown]
  - Product dose omission issue [Unknown]
  - Circumstance or information capable of leading to medication error [Unknown]
  - Inappropriate schedule of product administration [Unknown]
  - Lack of injection site rotation [Unknown]
